FAERS Safety Report 6285282-6 (Version None)
Quarter: 2009Q3

REPORT INFORMATION
  Report Type: 
  Country: None (occurrence: None)
  Receive Date: 20090723
  Receipt Date: 20090714
  Transmission Date: 20100115
  Serious: Yes (Other)
  Sender: FDA-Public Use
  Company Number: 2009AL004693

PATIENT
  Age: 55 Year
  Sex: Male

DRUGS (8)
  1. DICLOFENAC SODIUM [Suspect]
     Indication: PAIN
     Dosage: 50 MG; TID
     Dates: start: 20090701, end: 20090701
  2. TRAXAM [Concomitant]
  3. MYCOPHENOLATE MOFETIL [Concomitant]
  4. FEXOFENADINE [Concomitant]
  5. RAMIPRIL [Concomitant]
  6. SIMVASTATIN [Concomitant]
  7. COTRIM [Concomitant]
  8. RISEDRONIC ACID [Concomitant]

REACTIONS (3)
  - DYSPNOEA [None]
  - LIP SWELLING [None]
  - URTICARIA [None]
